FAERS Safety Report 15681356 (Version 3)
Quarter: 2019Q1

REPORT INFORMATION
  Report Type: Spontaneous
  Country: GB (occurrence: GB)
  Receive Date: 20181203
  Receipt Date: 20190117
  Transmission Date: 20190417
  Serious: Yes (Other)
  Sender: FDA-Public Use
  Company Number: GB-GLAXOSMITHKLINE-GB2018GSK216979

PATIENT
  Age: 7 Decade
  Sex: Male

DRUGS (4)
  1. 5-FLUOROURACIL [Suspect]
     Active Substance: FLUOROURACIL
     Indication: BENIGN NEOPLASM
     Dosage: UNK
     Route: 061
  2. ACITRETIN. [Suspect]
     Active Substance: ACITRETIN
     Indication: SKIN CANCER
     Dosage: UNK (LOW DOSE)
     Route: 065
  3. SIROLIMUS. [Interacting]
     Active Substance: SIROLIMUS
     Indication: SKIN CANCER
     Dosage: 1.5 MG, QD (QAM)
     Route: 065
     Dates: start: 201509
  4. TACROLIMUS. [Interacting]
     Active Substance: TACROLIMUS
     Indication: PROPHYLAXIS AGAINST TRANSPLANT REJECTION
     Dosage: 1.5 MG, BID
     Route: 065
     Dates: end: 201509

REACTIONS (4)
  - Squamous cell carcinoma [Unknown]
  - Impaired healing [Recovered/Resolved]
  - Skin erosion [Recovered/Resolved]
  - Drug interaction [Unknown]
